FAERS Safety Report 8515806-7 (Version None)
Quarter: 2012Q3

REPORT INFORMATION
  Report Type: 
  Country: None (occurrence: None)
  Receive Date: 20120717
  Receipt Date: 20120711
  Transmission Date: 20120928
  Serious: Yes (Hospitalization, Other)
  Sender: FDA-Public Use
  Company Number: BR-ABBOTT-12P-020-0952108-00

PATIENT
  Sex: Female
  Weight: 46 kg

DRUGS (3)
  1. DEPAKENE [Suspect]
     Indication: CONVULSION
     Dosage: 250MG/5ML
     Route: 048
  2. PHENYTOIN [Concomitant]
     Indication: CONVULSION
     Route: 048
  3. CAPTOPRIL [Concomitant]
     Indication: BLOOD PRESSURE ABNORMAL
     Route: 048

REACTIONS (6)
  - DISORIENTATION [None]
  - CEREBRAL ARTERY EMBOLISM [None]
  - BENIGN NEOPLASM [None]
  - MASS [None]
  - SOMNOLENCE [None]
  - DELIRIUM [None]
